FAERS Safety Report 5737502-1 (Version None)
Quarter: 2008Q2

REPORT INFORMATION
  Report Type: 
  Country: None (occurrence: None)
  Receive Date: 20080514
  Receipt Date: 20080508
  Transmission Date: 20081010
  Serious: Yes (Hospitalization)
  Sender: FDA-Public Use
  Company Number: US-GENENTECH-259919

PATIENT
  Sex: Male
  Weight: 120.18 kg

DRUGS (7)
  1. LUCENTIS [Suspect]
     Indication: MACULAR DEGENERATION
     Route: 031
     Dates: start: 20050101
  2. AVASTIN [Suspect]
     Indication: MACULAR DEGENERATION
     Dosage: UNK, SINGLE
     Route: 031
     Dates: start: 20071227
  3. CHROMIUM NOS [Concomitant]
     Indication: DRUG USE FOR UNKNOWN INDICATION
  4. LISINOPRIL [Concomitant]
     Indication: DRUG USE FOR UNKNOWN INDICATION
  5. POTASSIUM CITRATE [Concomitant]
     Indication: DRUG USE FOR UNKNOWN INDICATION
  6. PROPRANOLOL [Concomitant]
     Indication: TREMOR
  7. SUPER B COMPLEX [Concomitant]
     Indication: DRUG USE FOR UNKNOWN INDICATION

REACTIONS (4)
  - DISORIENTATION [None]
  - DIZZINESS [None]
  - VISION BLURRED [None]
  - VISUAL DISTURBANCE [None]
